FAERS Safety Report 16183885 (Version 3)
Quarter: 2019Q2

REPORT INFORMATION
  Report Type: Spontaneous
  Country: TW (occurrence: TW)
  Receive Date: 20190411
  Receipt Date: 20190627
  Transmission Date: 20190711
  Serious: Yes (Death, Life-Threatening, Other)
  Sender: FDA-Public Use
  Company Number: TW-AMGEN-TWNSP2019056282

PATIENT
  Age: 26 Year
  Sex: Female

DRUGS (1)
  1. BLINCYTO [Suspect]
     Active Substance: BLINATUMOMAB
     Indication: PRODUCT USED FOR UNKNOWN INDICATION
     Dosage: UNK
     Route: 065

REACTIONS (4)
  - Aspartate aminotransferase abnormal [Fatal]
  - Alanine aminotransferase abnormal [Fatal]
  - Ammonia increased [Not Recovered/Not Resolved]
  - Coma [Fatal]
